FAERS Safety Report 5281530-X (Version None)
Quarter: 2007Q1

REPORT INFORMATION
  Report Type: 
  Country: None (occurrence: None)
  Receive Date: 20070330
  Receipt Date: 20070319
  Transmission Date: 20070707
  Serious: Yes (Death, Life-Threatening)
  Sender: FDA-Public Use
  Company Number: FR-NOVOPROD-261821

PATIENT
  Age: 80 Year
  Sex: Male

DRUGS (10)
  1. NOVONORM [Suspect]
     Indication: DIABETES MELLITUS
     Route: 048
  2. DETENSIEL [Suspect]
     Route: 048
  3. MEMANTINE HCL [Suspect]
     Route: 048
  4. OMEPRAZOLE [Concomitant]
     Route: 048
  5. DIGOXIN [Concomitant]
     Route: 048
  6. METFORMIN HCL [Concomitant]
  7. FUROSEMIDE [Concomitant]
     Route: 048
  8. COZAAR [Concomitant]
     Route: 048
  9. PREVISCAN [Concomitant]
     Route: 048
  10. CIPROFIBRATE [Concomitant]
     Route: 048

REACTIONS (1)
  - RETROPERITONEAL FIBROSIS [None]
